FAERS Safety Report 4455914-3 (Version None)
Quarter: 2004Q3

REPORT INFORMATION
  Report Type: 
  Country: None (occurrence: None)
  Receive Date: 20040920
  Receipt Date: 20040907
  Transmission Date: 20050211
  Serious: Yes (Other)
  Sender: FDA-Public Use
  Company Number: S04-USA-04302-01

PATIENT
  Age: 91 Year
  Sex: Female

DRUGS (12)
  1. NAMENDA [Suspect]
     Indication: VASCULAR DEMENTIA
     Dosage: 5 MG QD PO
     Route: 048
     Dates: start: 20040430, end: 20040506
  2. NAMENDA [Suspect]
     Indication: VASCULAR DEMENTIA
     Dosage: 10 MG QD PO
     Route: 048
     Dates: start: 20040507, end: 20040513
  3. NAMENDA [Suspect]
     Indication: VASCULAR DEMENTIA
     Dosage: 15 MG QD PO
     Route: 048
     Dates: start: 20040514, end: 20040520
  4. NAMENDA [Suspect]
     Indication: VASCULAR DEMENTIA
     Dosage: 20 MG QD PO
     Route: 048
     Dates: start: 20040521, end: 20040622
  5. AVANDIA [Concomitant]
  6. LASIK [Concomitant]
  7. LANOXIN [Concomitant]
  8. MIACALCIN [Concomitant]
  9. PILOCARPINE [Concomitant]
  10. PRAVACHOL [Concomitant]
  11. SPIRONOLACTONE [Concomitant]
  12. ZOLOFT [Concomitant]

REACTIONS (8)
  - BRADYKINESIA [None]
  - CEREBROVASCULAR DISORDER [None]
  - COGWHEEL RIGIDITY [None]
  - DIFFICULTY IN WALKING [None]
  - MICROANGIOPATHY [None]
  - NORMAL PRESSURE HYDROCEPHALUS [None]
  - PARKINSONIAN REST TREMOR [None]
  - PARKINSONISM [None]
